FAERS Safety Report 4571976-7 (Version None)
Quarter: 2005Q1

REPORT INFORMATION
  Report Type: 
  Country: None (occurrence: None)
  Receive Date: 20050202
  Receipt Date: 20050117
  Transmission Date: 20050727
  Serious: Yes (Hospitalization)
  Sender: FDA-Public Use
  Company Number: 2005BI001140

PATIENT
  Age: 36 Year
  Sex: Female
  Weight: 40.3701 kg

DRUGS (10)
  1. AVONEX [Suspect]
     Indication: MULTIPLE SCLEROSIS
     Dosage: 30 UG; QW; IM
     Route: 030
     Dates: start: 19970101, end: 20030501
  2. AVONEX [Suspect]
     Indication: MULTIPLE SCLEROSIS
     Dosage: 30 UG; QW; IM
     Route: 030
     Dates: start: 20030501, end: 20040501
  3. AVONEX [Suspect]
     Indication: MULTIPLE SCLEROSIS
     Dosage: SEE IMAGE
     Route: 030
     Dates: start: 20040501, end: 20040501
  4. AVONEX [Suspect]
     Indication: MULTIPLE SCLEROSIS
     Dosage: SEE IMAGE
     Route: 030
     Dates: start: 20040501, end: 20050101
  5. AVONEX [Suspect]
     Indication: MULTIPLE SCLEROSIS
     Dosage: SEE IMAGE
     Route: 030
     Dates: start: 20050108, end: 20050115
  6. PREDNISONE [Concomitant]
  7. STEROIDS IHALERS (NOS) [Concomitant]
  8. BLOOD PRESSURE ORAL [Concomitant]
  9. MEDS (NOS) [Concomitant]
  10. CHEMOTHERAPY (NOS) [Concomitant]

REACTIONS (7)
  - CONDITION AGGRAVATED [None]
  - HAEMORRHAGIC OVARIAN CYST [None]
  - INFLUENZA LIKE ILLNESS [None]
  - MULTIPLE SCLEROSIS [None]
  - POOR VENOUS ACCESS [None]
  - UTERINE LEIOMYOMA [None]
  - WEIGHT DECREASED [None]
